FAERS Safety Report 25277738 (Version 1)
Quarter: 2025Q2

REPORT INFORMATION
  Report Type: Report from Study
  Country: US (occurrence: US)
  Receive Date: 20250507
  Receipt Date: 20250507
  Transmission Date: 20250716
  Serious: Yes (Other)
  Sender: MYLAN
  Company Number: US-MYLANLABS-2025M1038286

PATIENT
  Sex: Female

DRUGS (8)
  1. REMIFENTANIL [Suspect]
     Active Substance: REMIFENTANIL
     Indication: Maintenance of anaesthesia
  2. REMIFENTANIL [Suspect]
     Active Substance: REMIFENTANIL
     Route: 042
  3. REMIFENTANIL [Suspect]
     Active Substance: REMIFENTANIL
     Route: 042
  4. REMIFENTANIL [Suspect]
     Active Substance: REMIFENTANIL
  5. PROPOFOL [Suspect]
     Active Substance: PROPOFOL
     Indication: Maintenance of anaesthesia
     Dosage: 150 MICROGRAM/KILOGRAM, QMINUTE
  6. PROPOFOL [Suspect]
     Active Substance: PROPOFOL
     Dosage: 150 MICROGRAM/KILOGRAM, QMINUTE
     Route: 042
  7. PROPOFOL [Suspect]
     Active Substance: PROPOFOL
     Dosage: 150 MICROGRAM/KILOGRAM, QMINUTE
     Route: 042
  8. PROPOFOL [Suspect]
     Active Substance: PROPOFOL
     Dosage: 150 MICROGRAM/KILOGRAM, QMINUTE

REACTIONS (1)
  - Drug ineffective [Unknown]
